FAERS Safety Report 6165678-3 (Version None)
Quarter: 2009Q2

REPORT INFORMATION
  Report Type: 
  Country: None (occurrence: None)
  Receive Date: 20090423
  Receipt Date: 20090417
  Transmission Date: 20091009
  Serious: Yes (Other)
  Sender: FDA-Public Use
  Company Number: JP-ALLERGAN-0905411US

PATIENT
  Sex: Female

DRUGS (9)
  1. ALESION TABLET [Suspect]
     Indication: DRUG USE FOR UNKNOWN INDICATION
     Dosage: 20 MG, QD
     Route: 048
  2. SELBEX [Concomitant]
     Dosage: 50 MG, UNK
     Route: 048
  3. LENDORMIN [Concomitant]
     Dosage: 0.25 MG, UNK
     Route: 048
  4. VITAMEDIN [Concomitant]
     Dosage: 50 MG, UNK
     Route: 048
  5. MEVALOTIN [Concomitant]
     Dosage: 5 MG, UNK
     Route: 048
  6. JUVELA N [Concomitant]
     Dosage: 200 MG, UNK
     Route: 048
  7. PULMICORT RESPULES [Concomitant]
     Dosage: 100 UG, UNK
     Route: 055
  8. NORVASC [Concomitant]
     Dosage: 2.5 MG, UNK
     Route: 048
  9. HERBESSER R [Concomitant]
     Dosage: 100 MG, UNK
     Route: 048

REACTIONS (1)
  - CHEST PAIN [None]
